FAERS Safety Report 24376284 (Version 1)
Quarter: 2024Q3

REPORT INFORMATION
  Report Type: Spontaneous
  Country: US (occurrence: None)
  Receive Date: 20240927
  Receipt Date: 20240927
  Transmission Date: 20241017
  Serious: Yes (Hospitalization)
  Sender: Public
  Company Number: None

PATIENT
  Age: 87 Year
  Sex: Female

DRUGS (11)
  1. NUCALA [Suspect]
     Active Substance: MEPOLIZUMAB
     Indication: Asthma
     Dosage: 100.MG/ML ONCE MONTHLY SUBCUTANEOUS?
     Route: 058
     Dates: start: 20220526
  2. DOXYCYCLINE [Concomitant]
     Active Substance: DOXYCYCLINE
  3. CARVEDILOL [Concomitant]
     Active Substance: CARVEDILOL
  4. CLONIDINE [Concomitant]
     Active Substance: CLONIDINE
  5. albuterol 0.083%, nebulizer solution [Concomitant]
  6. ELIQUIS [Concomitant]
     Active Substance: APIXABAN
  7. ESCITALOPRAM [Concomitant]
     Active Substance: ESCITALOPRAM OXALATE
  8. FUROSEMIDE [Concomitant]
     Active Substance: FUROSEMIDE
  9. MONTELUKAST [Concomitant]
     Active Substance: MONTELUKAST SODIUM
  10. trelegy ellipta 100-62.Smg [Concomitant]
  11. klor-con M20 er [Concomitant]

REACTIONS (2)
  - Malaise [None]
  - Cough [None]
